FAERS Safety Report 7780843-7 (Version None)
Quarter: 2011Q3

REPORT INFORMATION
  Report Type: 
  Country: None (occurrence: None)
  Receive Date: 20110927
  Receipt Date: 20110921
  Transmission Date: 20111222
  Serious: No
  Sender: FDA-Public Use
  Company Number: US-PFIZER INC-2011225909

PATIENT
  Sex: Female
  Weight: 65.533 kg

DRUGS (7)
  1. PLAVIX [Concomitant]
     Indication: CARDIAC DISORDER
     Dosage: 75 MG, ALTERNATE DAY
     Route: 048
  2. OMEPRAZOLE [Concomitant]
     Indication: GASTRIC DISORDER
     Dosage: 3 MG, 2X/DAY
     Route: 048
  3. LEVOTHYROXINE [Concomitant]
     Indication: THYROID DISORDER
     Dosage: 0.112 MG, DAILY
     Route: 048
  4. LYRICA [Suspect]
     Indication: HERPES ZOSTER
     Dosage: 75 MG, 2X/DAY
     Route: 048
     Dates: start: 20110701
  5. DONEPEZIL [Concomitant]
     Indication: MEMORY IMPAIRMENT
     Dosage: 10 MG, DAILY
     Route: 048
  6. LIPITOR [Concomitant]
     Indication: CARDIAC DISORDER
     Dosage: 10 MG, DAILY
     Route: 048
  7. DILTIAZEM [Concomitant]
     Indication: CARDIAC DISORDER
     Dosage: 180 MG, DAILY
     Route: 048

REACTIONS (2)
  - ELEVATED MOOD [None]
  - WEIGHT INCREASED [None]
